FAERS Safety Report 12975388 (Version 1)
Quarter: 2016Q4

REPORT INFORMATION
  Report Type: Report from Study
  Country: US (occurrence: US)
  Receive Date: 20161125
  Receipt Date: 20161125
  Transmission Date: 20170207
  Serious: Yes (Other)
  Sender: FDA-Public Use
  Company Number: US-NOVOPROD-519593

PATIENT
  Age: 55 Year
  Sex: Male
  Weight: 104.31 kg

DRUGS (2)
  1. NOVOLOG [Suspect]
     Active Substance: INSULIN ASPART
     Indication: TYPE 2 DIABETES MELLITUS
     Dosage: 60 U, SINGLE
     Route: 058
     Dates: start: 20161112, end: 20161112
  2. NOVOLOG MIX 70/30 [Suspect]
     Active Substance: INSULIN ASPART
     Indication: TYPE 2 DIABETES MELLITUS
     Dosage: 60 U, QD
     Route: 058

REACTIONS (2)
  - Hypersensitivity [Recovering/Resolving]
  - Drug administration error [Recovered/Resolved]

NARRATIVE: CASE EVENT DATE: 20161112
